FAERS Safety Report 5033676-9 (Version None)
Quarter: 2006Q2

REPORT INFORMATION
  Report Type: 
  Country: None (occurrence: None)
  Receive Date: 20060623
  Receipt Date: 20060524
  Transmission Date: 20061013
  Serious: Yes (Hospitalization)
  Sender: FDA-Public Use
  Company Number: JP-JPN-A200601701

PATIENT
  Age: 85 Year
  Sex: Male
  Weight: 28 kg

DRUGS (8)
  1. PAXIL [Suspect]
     Indication: DEPRESSION
     Dosage: 10MG PER DAY
     Route: 048
     Dates: start: 20050322, end: 20060412
  2. DOGMATYL [Concomitant]
     Indication: DEPRESSION
     Dosage: 50MG TWICE PER DAY
     Route: 048
     Dates: start: 20050301, end: 20060412
  3. LENDORMIN [Concomitant]
     Indication: INSOMNIA
     Dosage: 10MG PER DAY
     Route: 048
     Dates: start: 20050301, end: 20060327
  4. MAGMITT [Concomitant]
     Indication: CONSTIPATION
     Dosage: 500MG PER DAY
     Route: 048
  5. BIOFERMIN [Concomitant]
     Indication: CONSTIPATION
     Dosage: 1G PER DAY
     Route: 048
  6. JAPANESE MEDICATION [Concomitant]
     Indication: PHARYNGITIS
     Dosage: 6U PER DAY
     Route: 048
     Dates: start: 20060407, end: 20060411
  7. MUCODYNE [Concomitant]
     Indication: PHARYNGITIS
     Dosage: 750MG PER DAY
     Route: 048
     Dates: start: 20060407, end: 20060411
  8. CLARITHROMYCIN [Concomitant]
     Indication: PHARYNGITIS
     Dosage: 400MG PER DAY
     Route: 048
     Dates: start: 20060407, end: 20060411

REACTIONS (6)
  - ALANINE AMINOTRANSFERASE INCREASED [None]
  - ASPARTATE AMINOTRANSFERASE INCREASED [None]
  - BLOOD LACTATE DEHYDROGENASE INCREASED [None]
  - GAMMA-GLUTAMYLTRANSFERASE INCREASED [None]
  - HEPATIC FUNCTION ABNORMAL [None]
  - PROTEIN TOTAL DECREASED [None]
